FAERS Safety Report 23412305 (Version 1)
Quarter: 2024Q1

REPORT INFORMATION
  Report Type: Spontaneous
  Country: US (occurrence: US)
  Receive Date: 20240117
  Receipt Date: 20240117
  Transmission Date: 20240409
  Serious: No
  Sender: FDA-Public Use
  Company Number: US-NOVOPROD-1086590

PATIENT
  Age: 73 Year
  Sex: Male

DRUGS (8)
  1. OZEMPIC [Suspect]
     Active Substance: SEMAGLUTIDE
     Indication: Product used for unknown indication
     Dosage: UNK
     Route: 058
  2. OFEV [Suspect]
     Active Substance: NINTEDANIB
     Dosage: 200 MG, QD
     Route: 048
  3. OFEV [Suspect]
     Active Substance: NINTEDANIB
     Dosage: 150 MG, QD
     Route: 048
  4. OFEV [Suspect]
     Active Substance: NINTEDANIB
     Indication: Idiopathic pulmonary fibrosis
     Dosage: 300 MG, QD
     Route: 048
  5. TRADJENTA [Concomitant]
     Active Substance: LINAGLIPTIN
     Indication: Product used for unknown indication
     Dosage: UNK
  6. PREDNISONE [Suspect]
     Active Substance: PREDNISONE
     Indication: Respiratory tract infection
     Dosage: UNK
  7. WARFARIN [Suspect]
     Active Substance: WARFARIN
     Indication: Thrombosis
     Dosage: UNK
  8. AZITHROMYCIN [Suspect]
     Active Substance: AZITHROMYCIN
     Indication: Respiratory tract infection
     Dosage: UNK

REACTIONS (41)
  - Diverticulitis [Unknown]
  - Diverticulum [Unknown]
  - Bradycardia [Unknown]
  - Thrombosis [Unknown]
  - Oesophageal pain [Unknown]
  - Gastrointestinal pain [Unknown]
  - Retching [Not Recovered/Not Resolved]
  - Faeces discoloured [Unknown]
  - Discharge [Unknown]
  - Productive cough [Unknown]
  - Sinusitis [Unknown]
  - Procedural haemorrhage [Unknown]
  - Faeces discoloured [Unknown]
  - Dyschezia [Unknown]
  - Renal pain [Unknown]
  - Chest discomfort [Unknown]
  - Sinus disorder [Unknown]
  - Weight increased [Unknown]
  - Weight increased [Unknown]
  - Heart rate decreased [Unknown]
  - Cough [Unknown]
  - Dyspnoea [Unknown]
  - Blood potassium decreased [Unknown]
  - Chest discomfort [Unknown]
  - Decreased appetite [Unknown]
  - Diarrhoea [Recovered/Resolved]
  - Nausea [Not Recovered/Not Resolved]
  - Nausea [Recovered/Resolved]
  - Abdominal distension [Unknown]
  - Abdominal pain upper [Unknown]
  - Abdominal pain upper [Unknown]
  - Nausea [Unknown]
  - Abdominal pain upper [Not Recovered/Not Resolved]
  - Abdominal discomfort [Not Recovered/Not Resolved]
  - Vomiting [Unknown]
  - Constipation [Recovered/Resolved]
  - Decreased appetite [Unknown]
  - Abdominal pain [Unknown]
  - Gastrointestinal pain [Unknown]
  - Gastrooesophageal reflux disease [Unknown]
  - Headache [Unknown]

NARRATIVE: CASE EVENT DATE: 20220101
